FAERS Safety Report 5332679-4 (Version None)
Quarter: 2007Q2

REPORT INFORMATION
  Report Type: 
  Country: None (occurrence: None)
  Receive Date: 20070523
  Receipt Date: 20070511
  Transmission Date: 20071010
  Serious: Yes (Death)
  Sender: FDA-Public Use
  Company Number: BR-PFIZER INC-2007023716

PATIENT
  Age: 18 Year
  Sex: Female

DRUGS (4)
  1. VFEND [Suspect]
     Indication: FUSARIUM INFECTION
     Dates: start: 20060801, end: 20070201
  2. VFEND [Suspect]
     Indication: ASPERGILLOSIS
  3. DRUG, UNSPECIFIED [Concomitant]
  4. CHEMOTHERAPY NOS [Concomitant]

REACTIONS (4)
  - FUSARIUM INFECTION [None]
  - IMMUNODEFICIENCY [None]
  - NEUTROPENIA [None]
  - SEPSIS [None]
